FAERS Safety Report 5890097 (Version 13)
Quarter: 2014Q1

REPORT INFORMATION
  Report Type: Spontaneous
  Country: US (occurrence: US)
  Receive Date: 20051003
  Receipt Date: 20140219
  Transmission Date: 20141002
  Serious: Yes (Death, Hospitalization, Other)
  Sender: FDA-Public Use
  Company Number: PHEH2005US10675

PATIENT
  Age: 52 Year
  Sex: Female
  Weight: 80.73 kg

DRUGS (29)
  1. ZOMETA [Suspect]
     Indication: METASTASES TO BONE
     Dosage: 1 DF, QMO
     Route: 042
     Dates: start: 200110, end: 200403
  2. ZOMETA [Suspect]
     Indication: BREAST CANCER METASTATIC
  3. AREDIA [Suspect]
  4. CHEMOTHERAPEUTICS NOS [Suspect]
  5. XELODA [Concomitant]
     Indication: METASTASES TO BONE
     Dosage: 2000 MG, BID
     Route: 048
     Dates: start: 200110
  6. XELODA [Concomitant]
  7. MITOXANTRONE [Concomitant]
  8. COUMADIN [Concomitant]
     Dosage: 7.5 MG, UNK
  9. ADALAT [Concomitant]
  10. DIOVAN [Concomitant]
  11. ZOLOFT [Concomitant]
  12. LOPERAMIDE [Concomitant]
  13. CELEBREX [Concomitant]
  14. INSULIN [Concomitant]
     Indication: BLOOD GLUCOSE INCREASED
  15. RITALIN [Concomitant]
     Indication: FATIGUE
  16. CALCIUM LEUCOVORIN [Concomitant]
  17. GEMZAR [Concomitant]
  18. 5-FU [Concomitant]
  19. HORMONES [Concomitant]
  20. DECADRON #1 [Concomitant]
     Dosage: 10 MG, UNK
  21. ARANESP [Concomitant]
     Dosage: 300 MG,
     Route: 058
     Dates: start: 20030821
  22. ROCEPHINE [Concomitant]
     Indication: INFECTION
     Dates: start: 20020605
  23. NAVELBINE [Concomitant]
  24. COREG [Concomitant]
  25. HYDROCHLOROTHIAZIDE [Concomitant]
  26. ALLEGRA [Concomitant]
  27. NIFEDIPINE [Concomitant]
  28. AROMASIN [Concomitant]
     Indication: BREAST CANCER
     Dosage: 25 MG, QD
  29. BUSPAR [Concomitant]
     Indication: ANXIETY

REACTIONS (87)
  - Neoplasm progression [Fatal]
  - Malignant neoplasm progression [Fatal]
  - Osteolysis [Fatal]
  - Pericardial effusion [Fatal]
  - Dyspnoea [Fatal]
  - Atelectasis [Fatal]
  - Pleural effusion [Fatal]
  - Respiratory distress [Fatal]
  - Aspiration pleural cavity [Fatal]
  - Pathological fracture [Unknown]
  - Osteonecrosis of jaw [Recovering/Resolving]
  - Bone disorder [Recovering/Resolving]
  - Swelling [Recovering/Resolving]
  - Tooth infection [Recovering/Resolving]
  - Tooth abscess [Recovering/Resolving]
  - Oral fungal infection [Recovering/Resolving]
  - Infection [Recovering/Resolving]
  - Disorientation [Unknown]
  - Pain [Recovered/Resolved]
  - Gingival swelling [Recovered/Resolved]
  - Inflammation [Recovering/Resolving]
  - Loose tooth [Recovering/Resolving]
  - Gingival pain [Not Recovered/Not Resolved]
  - Cardiomyopathy [Unknown]
  - Deep vein thrombosis [Unknown]
  - Diabetic foot infection [Unknown]
  - Angiopathy [Unknown]
  - Impaired healing [Unknown]
  - Purulence [Unknown]
  - Anaemia [Unknown]
  - Local swelling [Unknown]
  - Palmar-plantar erythrodysaesthesia syndrome [Unknown]
  - Phlebitis [Unknown]
  - Fatigue [Unknown]
  - Oral candidiasis [Unknown]
  - Left atrial dilatation [Unknown]
  - Right atrial dilatation [Unknown]
  - Right ventricular dysfunction [Unknown]
  - Dilatation ventricular [Unknown]
  - Chronic obstructive pulmonary disease [Unknown]
  - Pneumonia [Unknown]
  - Tachycardia [Unknown]
  - Poor quality sleep [Unknown]
  - Asthenia [Unknown]
  - Peripheral coldness [Unknown]
  - Skin discolouration [Unknown]
  - Skin exfoliation [Unknown]
  - Scoliosis [Unknown]
  - Pulmonary mass [Unknown]
  - Hepatic steatosis [Unknown]
  - Pulmonary congestion [Unknown]
  - Femur fracture [Unknown]
  - Metastases to pleura [Unknown]
  - Embolism [Unknown]
  - Leukopenia [Unknown]
  - Thrombocytopenia [Unknown]
  - Oedema peripheral [Not Recovered/Not Resolved]
  - Malignant pleural effusion [Unknown]
  - Erythema [Unknown]
  - Urinary tract infection [Unknown]
  - Aortic valve sclerosis [Unknown]
  - Mitral valve calcification [Unknown]
  - Mitral valve sclerosis [Unknown]
  - Mitral valve incompetence [Unknown]
  - Tricuspid valve incompetence [Unknown]
  - Pulmonary hypertension [Unknown]
  - Pulmonary valve incompetence [Unknown]
  - Lung infiltration [Not Recovered/Not Resolved]
  - Lymphangiosis carcinomatosa [Unknown]
  - Pulmonary oedema [Unknown]
  - Respiratory failure [Unknown]
  - Bronchitis chronic [Unknown]
  - Cardiac failure congestive [Unknown]
  - Metastases to lung [Unknown]
  - Acidosis [Unknown]
  - Joint swelling [Unknown]
  - Hypoxia [Unknown]
  - Venous thrombosis [Unknown]
  - Bone cyst [Unknown]
  - Spinal disorder [Unknown]
  - Vertebral foraminal stenosis [Unknown]
  - Stomatitis [Unknown]
  - Sinus congestion [Unknown]
  - Rhinorrhoea [Unknown]
  - Lethargy [Unknown]
  - Rales [Unknown]
  - Insomnia [Unknown]
